FAERS Safety Report 8018681-2 (Version None)
Quarter: 2012Q1

REPORT INFORMATION
  Report Type: 
  Country: None (occurrence: None)
  Receive Date: 20120103
  Receipt Date: 20120103
  Transmission Date: 20120608
  Serious: Yes (Other)
  Sender: FDA-Public Use
  Company Number: None

PATIENT
  Sex: Male
  Weight: 95.254 kg

DRUGS (2)
  1. SIMVASTATIN [Concomitant]
  2. TRILIPIX [Suspect]
     Indication: HYPERTRIGLYCERIDAEMIA
     Dosage: 135 MG
     Route: 048
     Dates: start: 20110925, end: 20111025

REACTIONS (1)
  - BLOOD CREATININE INCREASED [None]
